FAERS Safety Report 5931694-7 (Version None)
Quarter: 2008Q4

REPORT INFORMATION
  Report Type: 
  Country: None (occurrence: None)
  Receive Date: 20081027
  Receipt Date: 20081023
  Transmission Date: 20090506
  Serious: Yes (Hospitalization)
  Sender: FDA-Public Use
  Company Number: US-BRISTOL-MYERS SQUIBB COMPANY-14381370

PATIENT
  Age: 56 Year
  Sex: Female
  Weight: 42 kg

DRUGS (2)
  1. CISPLATIN [Suspect]
     Indication: HEAD AND NECK CANCER
     Dosage: 100 MG/M2 ON DAY 1 + 22 CONCURRENTLY WITH IMRT 1ST CYC:04AUG08 2ND CYC:25AUG08
     Dates: start: 20080825, end: 20080825
  2. RADIATION THERAPY [Suspect]
     Indication: HEAD AND NECK CANCER
     Dosage: 1DF=5120 GY NO.OF FRACTIONS:37 NO.OF ELASPED DAYS:32
     Dates: start: 20080804

REACTIONS (3)
  - ADVERSE EVENT [None]
  - DEHYDRATION [None]
  - WEIGHT DECREASED [None]
